FAERS Safety Report 4623456-8 (Version None)
Quarter: 2005Q1

REPORT INFORMATION
  Report Type: 
  Country: None (occurrence: None)
  Receive Date: 20050330
  Receipt Date: 20050321
  Transmission Date: 20050727
  Serious: Yes (Hospitalization)
  Sender: FDA-Public Use
  Company Number: 2005CG00580

PATIENT
  Age: 89 Year
  Sex: Female

DRUGS (5)
  1. HYTACAND [Suspect]
     Indication: ESSENTIAL HYPERTENSION
     Dosage: 0.5 DF QD PO
     Route: 048
     Dates: end: 20041203
  2. OMEPRAZOLE [Concomitant]
  3. PLAVIX [Concomitant]
  4. TEMESTA [Concomitant]
  5. VASTAREL [Concomitant]

REACTIONS (5)
  - FALL [None]
  - HUMERUS FRACTURE [None]
  - MALAISE [None]
  - ORTHOSTATIC HYPOTENSION [None]
  - RIB FRACTURE [None]
